FAERS Safety Report 4613238-5 (Version None)
Quarter: 2005Q1

REPORT INFORMATION
  Report Type: 
  Country: None (occurrence: None)
  Receive Date: 20050315
  Receipt Date: 20050302
  Transmission Date: 20050727
  Serious: Yes (Hospitalization, Other)
  Sender: FDA-Public Use
  Company Number: 2005040174

PATIENT
  Age: 47 Year
  Sex: Male

DRUGS (6)
  1. TRIAZOLAM [Suspect]
     Indication: ILL-DEFINED DISORDER
     Dosage: 2.5 MG, ORAL
     Route: 048
  2. FLUNITRAZEPAM (FLUNITRAZEPAM) [Suspect]
     Indication: ILL-DEFINED DISORDER
     Dosage: ORAL
     Route: 048
  3. PHENOBARBITAL TAB [Suspect]
     Indication: ILL-DEFINED DISORDER
     Dosage: ORAL
     Route: 048
  4. LORAZEPAM [Suspect]
     Indication: ILL-DEFINED DISORDER
     Dosage: ORAL
     Route: 048
  5. TIZANIDINE HCL [Suspect]
     Indication: ILL-DEFINED DISORDER
     Dosage: ORAL
     Route: 048
  6. ZOPICLONE (ZOPICLONE) [Suspect]
     Indication: ILL-DEFINED DISORDER
     Dosage: ORAL
     Route: 048

REACTIONS (10)
  - ABDOMINAL PAIN [None]
  - ACUTE PRERENAL FAILURE [None]
  - BLOOD PRESSURE SYSTOLIC INCREASED [None]
  - BODY TEMPERATURE DECREASED [None]
  - DEHYDRATION [None]
  - HAEMODIALYSIS [None]
  - INTENTIONAL MISUSE [None]
  - RHABDOMYOLYSIS [None]
  - SUICIDE ATTEMPT [None]
  - VOMITING [None]
